FAERS Safety Report 19441238 (Version 1)
Quarter: 2021Q2

REPORT INFORMATION
  Report Type: Spontaneous
  Country: US (occurrence: US)
  Receive Date: 20210617
  Receipt Date: 20210617
  Transmission Date: 20210717
  Serious: Yes (Hospitalization)
  Sender: FDA-Public Use
  Company Number: None

PATIENT
  Sex: Female

DRUGS (4)
  1. OMEPRAZOLE. [Concomitant]
     Active Substance: OMEPRAZOLE
  2. HUMIRA [Suspect]
     Active Substance: ADALIMUMAB
     Indication: JUVENILE IDIOPATHIC ARTHRITIS
     Dosage: ?          OTHER FREQUENCY:EVERY 3 WEEKS;?
     Route: 058
     Dates: start: 20181213
  3. NABUMETONE. [Concomitant]
     Active Substance: NABUMETONE
  4. SERTRALINE [Concomitant]
     Active Substance: SERTRALINE HYDROCHLORIDE

REACTIONS (2)
  - Therapy interrupted [None]
  - Hospitalisation [None]
